FAERS Safety Report 24206175 (Version 1)
Quarter: 2024Q3

REPORT INFORMATION
  Report Type: Spontaneous
  Country: US (occurrence: None)
  Receive Date: 20240812
  Receipt Date: 20240812
  Transmission Date: 20241016
  Serious: Yes (Hospitalization)
  Sender: Public
  Company Number: None

PATIENT
  Age: 18 Year
  Sex: Female
  Weight: 112.5 kg

DRUGS (3)
  1. LYRICA [Suspect]
     Active Substance: PREGABALIN
     Indication: Anxiety
     Route: 048
     Dates: start: 20230820, end: 20230822
  2. LYRICA [Suspect]
     Active Substance: PREGABALIN
     Indication: Pain
  3. GABAPENTIN [Concomitant]
     Active Substance: GABAPENTIN

REACTIONS (6)
  - Psychotic disorder [None]
  - Bladder disorder [None]
  - Urinary tract infection [None]
  - Thirst [None]
  - Contusion [None]
  - Cold sweat [None]

NARRATIVE: CASE EVENT DATE: 20220820
